FAERS Safety Report 8918454 (Version 3)
Quarter: 2013Q1

REPORT INFORMATION
  Report Type: Spontaneous
  Country: JP (occurrence: JP)
  Receive Date: 20121120
  Receipt Date: 20130102
  Transmission Date: 20140127
  Serious: Yes (Other)
  Sender: FDA-Public Use
  Company Number: JP-JNJFOC-20121107400

PATIENT
  Age: 60 Year
  Sex: Male

DRUGS (6)
  1. TRAMCET [Suspect]
     Indication: PAIN
     Dosage: 4 PER 1 DAY
     Route: 048
     Dates: start: 20121108, end: 201211
  2. TRAMCET [Suspect]
     Indication: PAIN
     Dosage: 1 PER 1 DAY
     Route: 048
     Dates: start: 201211, end: 20121124
  3. GANATON [Concomitant]
     Route: 048
  4. AIROMATE [Concomitant]
     Route: 048
  5. MUCOSTA [Concomitant]
     Route: 065
  6. LIMAPROST ALFADEX [Concomitant]
     Route: 048

REACTIONS (1)
  - Hypothermia [Recovered/Resolved]
